FAERS Safety Report 6290333-9 (Version None)
Quarter: 2009Q3

REPORT INFORMATION
  Report Type: 
  Country: None (occurrence: None)
  Receive Date: 20090730
  Receipt Date: 20090303
  Transmission Date: 20100115
  Serious: No
  Sender: FDA-Public Use
  Company Number: US-BRISTOL-MYERS SQUIBB COMPANY-14526149

PATIENT
  Age: 71 Year
  Sex: Male
  Weight: 93 kg

DRUGS (3)
  1. COUMADIN [Suspect]
     Indication: MITRAL VALVE REPAIR
     Dosage: 7.5 MG 2 DAYS A WEEK
     Dates: start: 19961201
  2. PREVACID [Concomitant]
  3. ZOCOR [Concomitant]

REACTIONS (1)
  - URINE OUTPUT INCREASED [None]
